FAERS Safety Report 4939193-6 (Version None)
Quarter: 2006Q1

REPORT INFORMATION
  Report Type: 
  Country: None (occurrence: None)
  Receive Date: 20060223
  Receipt Date: 20060223
  Transmission Date: 20060701
  Serious: Yes (Other)
  Sender: FDA-Public Use
  Company Number: None

PATIENT
  Age: 80 Year
  Sex: Male
  Weight: 68.0396 kg

DRUGS (1)
  1. SILVER GENERATOR [Suspect]
     Indication: IMMUNE SYSTEM DISORDER
     Dosage: 16 MG  DAILY  PO
     Route: 048
     Dates: start: 20000101, end: 20060101

REACTIONS (6)
  - ASTHENIA [None]
  - DEPRESSION [None]
  - DRUG TOXICITY [None]
  - MYALGIA [None]
  - SKIN DISCOLOURATION [None]
  - TREMOR [None]
